FAERS Safety Report 5590133-9 (Version None)
Quarter: 2007Q4

REPORT INFORMATION
  Report Type: 
  Country: None (occurrence: None)
  Receive Date: 20071217
  Receipt Date: 20070906
  Transmission Date: 20080405
  Serious: No
  Sender: FDA-Public Use
  Company Number: BDI-010163

PATIENT
  Age: 42 Year
  Sex: Female

DRUGS (6)
  1. MULTIHANCE [Suspect]
     Dosage: 20 ML ONCE IV
     Route: 042
     Dates: start: 20070906, end: 20070906
  2. NEXIUM [Concomitant]
  3. ZIAC [Concomitant]
  4. DIAN [Concomitant]
  5. SINGULAIR [Concomitant]
  6. NAPROSYN [Concomitant]

REACTIONS (1)
  - URTICARIA [None]
